FAERS Safety Report 24251078 (Version 1)
Quarter: 2024Q3

REPORT INFORMATION
  Report Type: Report from Study
  Country: GR (occurrence: GR)
  Receive Date: 20240826
  Receipt Date: 20240826
  Transmission Date: 20241017
  Serious: Yes (Hospitalization, Other)
  Sender: ABBVIE
  Company Number: GR-ABBVIE-5479841

PATIENT
  Sex: Male

DRUGS (3)
  1. CARBIDOPA\LEVODOPA [Suspect]
     Active Substance: CARBIDOPA\LEVODOPA
     Indication: Parkinson^s disease
     Dosage: MORNING DOSE: 13.0ML; CONTINUOUS RATE: 3.9ML/H; EXTRA DOSE: 1.5ML
     Route: 050
     Dates: start: 20210920
  2. CARBIDOPA\LEVODOPA [Suspect]
     Active Substance: CARBIDOPA\LEVODOPA
     Dosage: MORNING DOSE: 10.5ML; CONTINUOUS RATE: 4.2ML/H; EXTRA DOSE: 1.5ML
     Route: 050
  3. OXYGEN [Concomitant]
     Active Substance: OXYGEN
     Indication: Product used for unknown indication
     Dosage: 3 LITER

REACTIONS (2)
  - Respiratory tract infection [Recovered/Resolved]
  - Tracheostomy [Not Recovered/Not Resolved]
